FAERS Safety Report 13261106 (Version 1)
Quarter: 2017Q1

REPORT INFORMATION
  Report Type: Spontaneous
  Country: TR (occurrence: TR)
  Receive Date: 20170222
  Receipt Date: 20170222
  Transmission Date: 20170428
  Serious: Yes (Disabling)
  Sender: FDA-Public Use
  Company Number: TR-TEVA-741953ISR

PATIENT
  Age: 47 Year
  Sex: Female

DRUGS (2)
  1. ZORETANIN [Suspect]
     Active Substance: ISOTRETINOIN
     Indication: ROSACEA
     Dosage: 10 MILLIGRAM DAILY; 10 MG AT MORNINGS
     Route: 048
  2. ZORETANIN [Suspect]
     Active Substance: ISOTRETINOIN
     Dosage: 20 MILLIGRAM DAILY; 20 MG AT EVENINGS
     Route: 048

REACTIONS (3)
  - Sacroiliitis [Recovering/Resolving]
  - Gait disturbance [Recovering/Resolving]
  - Arthralgia [Recovering/Resolving]
